FAERS Safety Report 7227540-4 (Version None)
Quarter: 2011Q1

REPORT INFORMATION
  Report Type: 
  Country: None (occurrence: None)
  Receive Date: 20110114
  Receipt Date: 20110104
  Transmission Date: 20110831
  Serious: Yes (Hospitalization)
  Sender: FDA-Public Use
  Company Number: US-ENDO PHARMACEUTICALS INC.-VALS20110002

PATIENT
  Sex: Female

DRUGS (1)
  1. VALSTAR PRESERVATIVE FREE [Suspect]
     Indication: BLADDER CANCER
     Dosage: 800 MG
     Route: 043

REACTIONS (1)
  - RENAL DISORDER [None]
